FAERS Safety Report 17407744 (Version 1)
Quarter: 2020Q1

REPORT INFORMATION
  Report Type: Spontaneous
  Country: CH (occurrence: CH)
  Receive Date: 20200212
  Receipt Date: 20200212
  Transmission Date: 20200409
  Serious: Yes (Hospitalization)
  Sender: FDA-Public Use
  Company Number: CH-TEVA-2020-CH-1183294

PATIENT
  Age: 40 Year
  Sex: Male

DRUGS (6)
  1. NOPIL FORTE [Suspect]
     Active Substance: SULFAMETHOXAZOLE\TRIMETHOPRIM
     Indication: ANTIFUNGAL PROPHYLAXIS
     Dosage: TIME INTERVAL:1-0-0-0 (2.33 D)?1 DOSAGE FORM: 800 MG SULFAMETHOXAZOLE + 160 MG TRIMETHOPRIM
     Route: 048
     Dates: start: 20190501, end: 20190611
  2. NORVIR [Concomitant]
     Active Substance: RITONAVIR
  3. NOPIL FORTE [Suspect]
     Active Substance: SULFAMETHOXAZOLE\TRIMETHOPRIM
     Dosage: TIME INTERVAL: 1-0-0-0 (2.33 D)?1 DOSAGE FORM: 800 MG SULFAMETHOXAZOLE + 160 MG TRIMETHOPRIM
     Route: 048
     Dates: start: 20191121, end: 20191205
  4. PANTOZOL [Concomitant]
     Active Substance: PANTOPRAZOLE SODIUM
  5. PREZISTA [Concomitant]
     Active Substance: DARUNAVIR ETHANOLATE
  6. DESCOVY [Concomitant]
     Active Substance: EMTRICITABINE\TENOFOVIR ALAFENAMIDE FUMARATE

REACTIONS (2)
  - Cholestatic liver injury [Recovering/Resolving]
  - Cholestatic liver injury [Recovered/Resolved]

NARRATIVE: CASE EVENT DATE: 20190610
